FAERS Safety Report 18466532 (Version 1)
Quarter: 2020Q4

REPORT INFORMATION
  Report Type: Spontaneous
  Country: GB (occurrence: GB)
  Receive Date: 20201105
  Receipt Date: 20201105
  Transmission Date: 20210114
  Serious: Yes (Life-Threatening)
  Sender: FDA-Public Use
  Company Number: GB-ACCORD-207360

PATIENT
  Age: 76 Year
  Sex: Female

DRUGS (19)
  1. DOCUSATE/DOCUSATE CALCIUM/DOCUSATE POTASSIUM/DOCUSATE SODIUM [Concomitant]
     Active Substance: DOCUSATE
  2. NICORANDIL [Concomitant]
     Active Substance: NICORANDIL
  3. SERTRALINE [Concomitant]
     Active Substance: SERTRALINE HYDROCHLORIDE
  4. HUMALOG MIX75/25 [Concomitant]
     Active Substance: INSULIN LISPRO
  5. GLUCOSE/GLUCOSE MONOHYDRATE/GLUCOSE OXIDASE [Concomitant]
     Active Substance: DEXTROSE
  6. AMLODIPINE [Concomitant]
     Active Substance: AMLODIPINE BESYLATE
  7. DIPROBASE [Concomitant]
     Active Substance: CHLOROCRESOL
  8. ATORVASTATIN [Concomitant]
     Active Substance: ATORVASTATIN
  9. SALBUTAMOL [Concomitant]
     Active Substance: ALBUTEROL
  10. BISOPROLOL [Concomitant]
     Active Substance: BISOPROLOL
  11. ISOSORBIDE. [Concomitant]
     Active Substance: ISOSORBIDE
  12. CANDESARTAN. [Concomitant]
     Active Substance: CANDESARTAN
  13. COLECALCIFEROL [Concomitant]
     Active Substance: CHOLECALCIFEROL
  14. LANSOPRAZOLE. [Concomitant]
     Active Substance: LANSOPRAZOLE
  15. RAMIPRIL. [Suspect]
     Active Substance: RAMIPRIL
     Indication: PRODUCT USED FOR UNKNOWN INDICATION
     Route: 048
  16. CLOPIDOGREL [Concomitant]
     Active Substance: CLOPIDOGREL BISULFATE
  17. MIRTAZAPINE. [Concomitant]
     Active Substance: MIRTAZAPINE
  18. FOLIC ACID. [Concomitant]
     Active Substance: FOLIC ACID
  19. DESMOPRESSIN [Concomitant]
     Active Substance: DESMOPRESSIN

REACTIONS (1)
  - Anaphylactic reaction [Unknown]

NARRATIVE: CASE EVENT DATE: 20190928
